FAERS Safety Report 10026088 (Version 2)
Quarter: 2014Q3

REPORT INFORMATION
  Report Type: Other
  Country: IT (occurrence: IT)
  Receive Date: 20140320
  Receipt Date: 20140919
  Transmission Date: 20150326
  Serious: Yes (Other)
  Sender: FDA-Public Use
  Company Number: IT-MYLANLABS-2014S1005480

PATIENT

DRUGS (4)
  1. OKI [Suspect]
     Active Substance: KETOPROFEN LYSINE
     Indication: TOOTHACHE
     Dosage: 6 DF, TOTAL
     Route: 048
     Dates: start: 20140110, end: 20140113
  2. AUGMENTIN [Suspect]
     Active Substance: AMOXICILLIN\CLAVULANATE POTASSIUM
     Indication: TOOTH INFECTION
     Dosage: 2 DF,QD
     Route: 048
     Dates: start: 20140110, end: 20140113
  3. PARACETAMOL [Concomitant]
     Active Substance: ACETAMINOPHEN
     Indication: TOOTHACHE
     Dosage: UNK
     Route: 048
     Dates: start: 20140110, end: 20140113
  4. CLARITHROMYCIN. [Suspect]
     Active Substance: CLARITHROMYCIN
     Indication: TOOTH INFECTION
     Dosage: 500 MG,TOTAL
     Route: 048
     Dates: start: 20140112, end: 20140112

REACTIONS (4)
  - Periorbital oedema [Recovered/Resolved]
  - Vomiting [Recovered/Resolved]
  - Headache [Recovered/Resolved]
  - Nausea [Recovered/Resolved]

NARRATIVE: CASE EVENT DATE: 20140112
